FAERS Safety Report 6742357-2 (Version None)
Quarter: 2010Q2

REPORT INFORMATION
  Report Type: 
  Country: None (occurrence: None)
  Receive Date: 20100524
  Receipt Date: 20100518
  Transmission Date: 20101027
  Serious: Yes (Hospitalization)
  Sender: FDA-Public Use
  Company Number: 011305

PATIENT
  Sex: Male
  Weight: 73 kg

DRUGS (2)
  1. CERTOLIZUMAB PEGOL (CERTOLIZUMAB PEGOL) [Suspect]
     Indication: CROHN'S DISEASE
     Dosage: 400 MG 1X/MONTH, CONTINUED BUT ADMINISTRATION POSTPONED SUBCUTANEOUS
     Route: 058
     Dates: start: 20050218
  2. MESACOL [Concomitant]

REACTIONS (8)
  - GLOMERULONEPHRITIS [None]
  - HAEMOGLOBIN URINE PRESENT [None]
  - HYDROTHORAX [None]
  - HYPERTENSION [None]
  - HYPOPROTEINAEMIA [None]
  - NEPHROPATHY [None]
  - OEDEMA PERIPHERAL [None]
  - PROTEINURIA [None]
